FAERS Safety Report 5447269-2 (Version None)
Quarter: 2007Q3

REPORT INFORMATION
  Report Type: 
  Country: None (occurrence: None)
  Receive Date: 20070910
  Receipt Date: 20070828
  Transmission Date: 20080115
  Serious: Yes (Life-Threatening)
  Sender: FDA-Public Use
  Company Number: AR-NOVOPROD-265522

PATIENT

DRUGS (8)
  1. NOVOSEVEN [Suspect]
     Indication: HAEMORRHAGE
     Dosage: 90 UG/KG, BID
     Route: 042
     Dates: start: 20061211, end: 20061211
  2. EPINEPHRINE [Concomitant]
  3. FENTANYL [Concomitant]
  4. PANCURONIUM [Concomitant]
  5. MEROPENEM [Concomitant]
  6. VANCOMYCIN [Concomitant]
  7. FUROSEMIDE [Concomitant]
  8. SODIUM NITROPRUSSIDE [Concomitant]

REACTIONS (2)
  - ARTERIAL THROMBOSIS [None]
  - VENA CAVA THROMBOSIS [None]
